FAERS Safety Report 8556546-8 (Version None)
Quarter: 2012Q3

REPORT INFORMATION
  Report Type: 
  Country: None (occurrence: None)
  Receive Date: 20120801
  Receipt Date: 20120730
  Transmission Date: 20120928
  Serious: Yes (Other)
  Sender: FDA-Public Use
  Company Number: CA-SANOFI-AVENTIS-2012SA037317

PATIENT
  Age: 44 Year
  Sex: Male

DRUGS (7)
  1. QUINAPRIL HCL + HYDROCHLOROTHIAZIDE [Concomitant]
     Dosage: QUINAPRIL 20 MG + HYDROCHLOROTHIAZIDE 12.5 MG
     Route: 048
  2. ATORVASTATIN [Concomitant]
     Route: 048
  3. DILTIAZEM [Concomitant]
     Route: 048
  4. DABIGATRAN [Concomitant]
     Route: 065
  5. MULTI-VITAMINS [Concomitant]
     Route: 048
  6. MULTAQ [Suspect]
     Route: 048
     Dates: start: 20110628, end: 20110904
  7. BUPROPION HCL [Concomitant]
     Route: 048

REACTIONS (16)
  - HEPATOTOXICITY [None]
  - RASH ERYTHEMATOUS [None]
  - TOXICITY TO VARIOUS AGENTS [None]
  - RASH [None]
  - VERTIGO [None]
  - BLOOD BILIRUBIN INCREASED [None]
  - C-REACTIVE PROTEIN INCREASED [None]
  - HEPATOCELLULAR INJURY [None]
  - GAMMA-GLUTAMYLTRANSFERASE INCREASED [None]
  - ALANINE AMINOTRANSFERASE INCREASED [None]
  - ABDOMINAL PAIN [None]
  - HEPATIC ENZYME INCREASED [None]
  - DIARRHOEA [None]
  - ASPARTATE AMINOTRANSFERASE INCREASED [None]
  - LIPASE INCREASED [None]
  - TREATMENT NONCOMPLIANCE [None]
